FAERS Safety Report 12649074 (Version 3)
Quarter: 2017Q2

REPORT INFORMATION
  Report Type: Report from Study
  Country: DE (occurrence: DE)
  Receive Date: 20160812
  Receipt Date: 20170516
  Transmission Date: 20170830
  Serious: Yes (Hospitalization)
  Sender: FDA-Public Use
  Company Number: DE-SA-2016SA143828

PATIENT
  Age: 39 Year
  Sex: Male

DRUGS (1)
  1. LEMTRADA [Suspect]
     Active Substance: ALEMTUZUMAB
     Indication: MULTIPLE SCLEROSIS
     Route: 041
     Dates: start: 20160523, end: 20160527

REACTIONS (7)
  - Rash [Recovered/Resolved]
  - Platelet count decreased [Recovered/Resolved]
  - Rash erythematous [Recovered/Resolved]
  - Oxygen saturation abnormal [Recovered/Resolved]
  - Stress [Not Recovered/Not Resolved]
  - Cardiovascular disorder [Unknown]
  - Urticaria [Unknown]

NARRATIVE: CASE EVENT DATE: 201605
